FAERS Safety Report 6397797-0 (Version None)
Quarter: 2009Q4

REPORT INFORMATION
  Report Type: 
  Country: None (occurrence: None)
  Receive Date: 20091006
  Receipt Date: 20090922
  Transmission Date: 20100525
  Serious: Yes (Other)
  Sender: FDA-Public Use
  Company Number: B0595626A

PATIENT
  Age: 63 Year
  Sex: Female

DRUGS (5)
  1. CIMETIDINE HYDROCHLORIDE [Suspect]
     Indication: BREAST CANCER METASTATIC
     Dosage: 300 MG /
  2. DIPHENHYDRAMINE HCL [Concomitant]
  3. DEXAMETHASONE [Concomitant]
  4. CARBOPLATIN [Concomitant]
  5. PACLITAXEL [Concomitant]

REACTIONS (3)
  - BACK PAIN [None]
  - BLOOD LACTATE DEHYDROGENASE INCREASED [None]
  - HAEMOLYTIC ANAEMIA [None]
